FAERS Safety Report 15150394 (Version 7)
Quarter: 2019Q2

REPORT INFORMATION
  Report Type: Report from Study
  Country: US (occurrence: US)
  Receive Date: 20180716
  Receipt Date: 20190617
  Transmission Date: 20190711
  Serious: Yes (Other)
  Sender: FDA-Public Use
  Company Number: US-PFIZER INC-2018179986

PATIENT
  Age: 88 Year
  Sex: Female

DRUGS (6)
  1. IBRANCE [Suspect]
     Active Substance: PALBOCICLIB
     Dosage: 100 MG, DAILY/FOR 21 DAYS AND OFF 7 DAYS
     Route: 048
     Dates: start: 20181108
  2. FASLODEX [Concomitant]
     Active Substance: FULVESTRANT
     Indication: BREAST CANCER METASTATIC
     Dosage: UNK, MONTHLY
     Dates: start: 201712, end: 201904
  3. IBRANCE [Suspect]
     Active Substance: PALBOCICLIB
     Dosage: 75 MG, CYCLIC (D1-21 + 28DAYS)
     Route: 048
     Dates: start: 201804, end: 20190214
  4. IBRANCE [Suspect]
     Active Substance: PALBOCICLIB
     Dosage: 125 MG, CYCLIC (DAILY; 3 WEEKS ON/1 WEEK OFF/21 DAYS AND OFF 7 DAYS)
     Route: 048
     Dates: start: 20180425, end: 2018
  5. IBRANCE [Suspect]
     Active Substance: PALBOCICLIB
     Indication: BREAST CANCER METASTATIC
     Dosage: 125 MG, CYCLIC (DAILY FOR 14 DAYS AND OFF 7 DAYS)
     Route: 048
     Dates: start: 20180225, end: 2018
  6. IBRANCE [Suspect]
     Active Substance: PALBOCICLIB
     Dosage: 125 MG, CYCLIC (DAILY FOR 14 DAYS AND OFF 7 DAYS)
     Route: 048
     Dates: start: 20180713, end: 2018

REACTIONS (18)
  - Nasopharyngitis [Unknown]
  - Bronchitis [Unknown]
  - Arthralgia [Unknown]
  - Headache [Unknown]
  - Atrial fibrillation [Unknown]
  - Blood pressure fluctuation [Unknown]
  - Bone marrow failure [Unknown]
  - Hypertension [Unknown]
  - Fatigue [Not Recovered/Not Resolved]
  - Decreased appetite [Unknown]
  - Anaemia [Recovering/Resolving]
  - Irritability [Unknown]
  - Cytopenia [Not Recovered/Not Resolved]
  - Epistaxis [Unknown]
  - White blood cell count decreased [Unknown]
  - Dry skin [Unknown]
  - Protein total decreased [Unknown]
  - Peripheral swelling [Unknown]

NARRATIVE: CASE EVENT DATE: 2018
